FAERS Safety Report 23917046 (Version 1)
Quarter: 2024Q2

REPORT INFORMATION
  Report Type: Spontaneous
  Country: US (occurrence: US)
  Receive Date: 20240529
  Receipt Date: 20240529
  Transmission Date: 20240715
  Serious: No
  Sender: FDA-Public Use
  Company Number: US-INCYTE CORPORATION-2024IN005571

PATIENT

DRUGS (1)
  1. JAKAFI [Suspect]
     Active Substance: RUXOLITINIB
     Indication: Transplantation complication
     Dosage: 5 MILLIGRAM, 3X/WEEK ON MONDAY, WEDNESDAY, AND FRIDAY
     Route: 048

REACTIONS (1)
  - Off label use [Unknown]
